FAERS Safety Report 8430156-5 (Version None)
Quarter: 2012Q2

REPORT INFORMATION
  Report Type: 
  Country: None (occurrence: None)
  Receive Date: 20120612
  Receipt Date: 20120607
  Transmission Date: 20120825
  Serious: Yes (Hospitalization, Other)
  Sender: FDA-Public Use
  Company Number: US-ROCHE-1076265

PATIENT
  Sex: Female

DRUGS (2)
  1. CELLCEPT [Suspect]
     Indication: PRODUCT USED FOR UNKNOWN INDICATION
  2. PROGRAF [Concomitant]

REACTIONS (3)
  - OEDEMA PERIPHERAL [None]
  - ANEURYSM [None]
  - URINARY TRACT INFECTION [None]
